FAERS Safety Report 8158542-1 (Version None)
Quarter: 2012Q1

REPORT INFORMATION
  Report Type: 
  Country: None (occurrence: None)
  Receive Date: 20120223
  Receipt Date: 20120216
  Transmission Date: 20120608
  Serious: Yes (Other)
  Sender: FDA-Public Use
  Company Number: CA-JNJFOC-20120209119

PATIENT
  Sex: Female
  Weight: 88 kg

DRUGS (1)
  1. STELARA [Suspect]
     Indication: PSORIASIS
     Dosage: ^0, 4, 16, 28 THEN Q 12^
     Route: 058
     Dates: start: 20110101

REACTIONS (5)
  - EYE PRURITUS [None]
  - EYE IRRITATION [None]
  - PSORIASIS [None]
  - EYE SWELLING [None]
  - LACRIMATION INCREASED [None]
